FAERS Safety Report 8833397 (Version 1)
Quarter: 2012Q4

REPORT INFORMATION
  Report Type: 
  Country: US (occurrence: US)
  Receive Date: 20121010
  Receipt Date: 20121010
  Transmission Date: 20130627
  Serious: Yes (Death, Hospitalization)
  Sender: FDA-Public Use
  Company Number: US-ROCHE-1137134

PATIENT
  Age: 48 Year
  Sex: Male
  Weight: 95.5 kg

DRUGS (5)
  1. HERCEPTIN [Suspect]
     Indication: BREAST CANCER METASTATIC
     Dosage: loading dose
     Route: 065
  2. HERCEPTIN [Suspect]
     Dosage: maintenance dose
     Route: 065
  3. VICODIN [Concomitant]
     Route: 065
  4. CARDIZEM [Concomitant]
     Route: 065
  5. GLUCOTROL [Concomitant]
     Route: 065

REACTIONS (6)
  - Death [Fatal]
  - Meningitis bacterial [Recovering/Resolving]
  - Blood pressure increased [Unknown]
  - Chills [Unknown]
  - Dyspnoea [Unknown]
  - Disease progression [Unknown]
